FAERS Safety Report 7479155-0 (Version None)
Quarter: 2011Q2

REPORT INFORMATION
  Report Type: 
  Country: None (occurrence: None)
  Receive Date: 20110513
  Receipt Date: 20110509
  Transmission Date: 20111010
  Serious: Yes (Life-Threatening)
  Sender: FDA-Public Use
  Company Number: FR-BRISTOL-MYERS SQUIBB COMPANY-15730542

PATIENT
  Age: 74 Year
  Sex: Female

DRUGS (6)
  1. ETOPOSIDE [Suspect]
     Indication: NON-HODGKIN'S LYMPHOMA
     Dosage: 1ST COURSE:ETOPOPHOS 480 MG OVER 1 HOUR 07APR2011:SECOND COURSE
     Route: 042
     Dates: start: 20110324
  2. PREDNISOLONE [Concomitant]
  3. IFOSFAMIDE [Suspect]
     Dosage: 2ND COURSE:07APR2011
     Dates: start: 20110324
  4. MESNA [Concomitant]
     Route: 042
     Dates: start: 20110324
  5. NEXIUM [Concomitant]
  6. RAMIPRIL [Concomitant]

REACTIONS (1)
  - ANAPHYLACTIC SHOCK [None]
